FAERS Safety Report 23475823 (Version 1)
Quarter: 2024Q1

REPORT INFORMATION
  Report Type: Report from Study
  Country: US (occurrence: US)
  Receive Date: 20240204
  Receipt Date: 20240204
  Transmission Date: 20240410
  Serious: No
  Sender: FDA-Public Use
  Company Number: US-EXELIXIS-CABO-23061067

PATIENT
  Sex: Male

DRUGS (1)
  1. CABOMETYX [Suspect]
     Active Substance: CABOZANTINIB S-MALATE
     Indication: Renal cancer
     Dosage: 40 MG, QD
     Route: 048

REACTIONS (6)
  - Salivary hypersecretion [Not Recovered/Not Resolved]
  - Skin irritation [Unknown]
  - Skin lesion [Unknown]
  - Pruritus [Unknown]
  - Nausea [Recovered/Resolved]
  - Stomatitis [Unknown]
